FAERS Safety Report 7097499-1 (Version None)
Quarter: 2010Q4

REPORT INFORMATION
  Report Type: 
  Country: None (occurrence: None)
  Receive Date: 20101111
  Receipt Date: 20101028
  Transmission Date: 20110411
  Serious: Yes (Other)
  Sender: FDA-Public Use
  Company Number: PHHY2010US73224

PATIENT
  Sex: Female

DRUGS (4)
  1. RECLAST [Suspect]
     Indication: OSTEOPOROSIS
     Dosage: 5MG/100ML, ANNUAL
     Route: 042
     Dates: start: 20091216
  2. LOPRESSOR [Concomitant]
  3. ACETAMINOPHEN [Concomitant]
  4. IBUPROFEN [Concomitant]
     Indication: PAIN

REACTIONS (2)
  - INFLUENZA LIKE ILLNESS [None]
  - PSORIASIS [None]
